FAERS Safety Report 19618371 (Version 1)
Quarter: 2021Q3

REPORT INFORMATION
  Report Type: Spontaneous
  Country: US (occurrence: US)
  Receive Date: 20210727
  Receipt Date: 20210727
  Transmission Date: 20211014
  Serious: Yes (Hospitalization)
  Sender: FDA-Public Use
  Company Number: US-ROCHE-2781696

PATIENT
  Sex: Female

DRUGS (7)
  1. SODIUM [Concomitant]
     Active Substance: SODIUM
  2. XELODA [Suspect]
     Active Substance: CAPECITABINE
     Dosage: MWF 2 500MG PILLS BID, TT 1 500MG PILL BID
     Route: 048
     Dates: start: 20210125
  3. DIAZEPAM. [Suspect]
     Active Substance: DIAZEPAM
     Indication: ANXIETY
     Dosage: AS NEEDED
     Route: 065
  4. CARAFATE [Concomitant]
     Active Substance: SUCRALFATE
     Indication: GASTRIC DISORDER
     Dosage: LIQUID
     Dates: start: 20201210
  5. XELODA [Suspect]
     Active Substance: CAPECITABINE
     Indication: COLON CANCER
     Dosage: MWF 3 500MG PILLS BID, TT 2 500MG PILLS BID
     Route: 048
     Dates: start: 202008, end: 20210125
  6. POTASSIUM [Concomitant]
     Active Substance: POTASSIUM
  7. MAGNESIUM [Concomitant]
     Active Substance: MAGNESIUM

REACTIONS (12)
  - Chapped lips [Recovered/Resolved]
  - Eye pruritus [Not Recovered/Not Resolved]
  - Poor quality sleep [Not Recovered/Not Resolved]
  - Gastric ulcer [Recovered/Resolved]
  - Hallucination [Not Recovered/Not Resolved]
  - Lip pruritus [Recovered/Resolved]
  - Skin fissures [Recovered/Resolved]
  - Mouth injury [Recovered/Resolved]
  - Lip swelling [Recovered/Resolved]
  - Dry skin [Recovered/Resolved]
  - Erythema [Recovered/Resolved]
  - Nail disorder [Recovered/Resolved]

NARRATIVE: CASE EVENT DATE: 202011
